FAERS Safety Report 9781163 (Version 1)
Quarter: 2013Q4

REPORT INFORMATION
  Report Type: Spontaneous
  Country: US (occurrence: None)
  Receive Date: 20131220
  Receipt Date: 20131220
  Transmission Date: 20140711
  Serious: Yes (Hospitalization, Other)
  Sender: FDA-Public Use
  Company Number: 2013EXPUS00163

PATIENT
  Age: 31 Year
  Sex: Female
  Weight: 62.4 kg

DRUGS (13)
  1. EXPAREL [Suspect]
     Indication: POSTOPERATIVE ANALGESIA
     Dosage: 20 ML, 1X, INFILTATION
     Dates: start: 20131212, end: 20131212
  2. HYDROMORPHONE HCL (HYDROMORPHONE HYDROCHLORIDE) [Concomitant]
  3. TORADOL (KETOROLAC TROMETHAMINE) [Concomitant]
  4. PHENYLEPHRINE HCL (PENHLEOPHRINE HYDROCHLORIDE) [Concomitant]
  5. NEOSTIGMINE (NEOSTIGMINE METILSUFATE) [Concomitant]
  6. PROPOFOL (PROPOFOL) [Concomitant]
  7. ROBINUL (GLYCOPYRRONIUM BROMIDE) [Concomitant]
  8. FENTANYL (FENTANYL) [Concomitant]
  9. VERSED (MIDAZOLAM HYDROCHLORIDE) [Concomitant]
  10. LIDOCAINE (LIDOCAINE HYDROCHLORIDE) [Concomitant]
  11. ROCURONIUM BROMIDE (ROCURONIUM BROMIDE) [Concomitant]
  12. ZOFRAN (ONDANSETRON HYDROCHLORIDE) [Concomitant]
  13. EPHEDRINE SULFATE (EPHEDRINE SULFATE) [Concomitant]

REACTIONS (5)
  - Grand mal convulsion [None]
  - Polyuria [None]
  - Hypotension [None]
  - Hyperhidrosis [None]
  - Liver function test abnormal [None]
